FAERS Safety Report 6338192-X (Version None)
Quarter: 2009Q3

REPORT INFORMATION
  Report Type: 
  Country: None (occurrence: None)
  Receive Date: 20090902
  Receipt Date: 20090824
  Transmission Date: 20100115
  Serious: Yes (Other)
  Sender: FDA-Public Use
  Company Number: JP-AVENTIS-200912318JP

PATIENT
  Age: 62 Year
  Sex: Male
  Weight: 66 kg

DRUGS (4)
  1. ARAVA [Suspect]
     Indication: RHEUMATOID ARTHRITIS
     Route: 048
     Dates: start: 20081222, end: 20090501
  2. MEDROL [Concomitant]
     Indication: RHEUMATOID ARTHRITIS
     Route: 048
     Dates: start: 20090114
  3. MOBIC [Concomitant]
     Indication: RHEUMATOID ARTHRITIS
     Route: 048
     Dates: start: 20090114, end: 20090327
  4. QUESTRAN [Concomitant]
     Indication: DRUG DETOXIFICATION
     Route: 048
     Dates: start: 20090502

REACTIONS (2)
  - ANAEMIA [None]
  - LEUKAEMIA [None]
